FAERS Safety Report 19495014 (Version 2)
Quarter: 2021Q3

REPORT INFORMATION
  Report Type: Report from Study
  Country: US (occurrence: US)
  Receive Date: 20210706
  Receipt Date: 20210719
  Transmission Date: 20211014
  Serious: Yes (Other)
  Sender: FDA-Public Use
  Company Number: US-CLOVIS ONCOLOGY-CLO-2021-000618

PATIENT
  Age: 51 Year
  Sex: Male

DRUGS (3)
  1. RUBRACA [Suspect]
     Active Substance: RUCAPARIB CAMSYLATE
     Dosage: 600 MILLIGRAM, BID
     Route: 048
     Dates: start: 20210516, end: 20210707
  2. RUBRACA [Suspect]
     Active Substance: RUCAPARIB CAMSYLATE
     Indication: PROSTATE CANCER
     Dosage: 600 MILLIGRAM, BID
     Route: 048
     Dates: start: 20200328
  3. RADIUM [Concomitant]
     Active Substance: RADIUM
     Indication: PRODUCT USED FOR UNKNOWN INDICATION

REACTIONS (13)
  - COVID-19 [Unknown]
  - Fatigue [Not Recovered/Not Resolved]
  - Bone pain [Unknown]
  - Hernia pain [Unknown]
  - Myalgia [Recovering/Resolving]
  - Anaemia [Unknown]
  - Tendon pain [Recovering/Resolving]
  - Blood count abnormal [Unknown]
  - Diarrhoea [Recovered/Resolved]
  - White blood cell count decreased [Unknown]
  - Arthralgia [Recovering/Resolving]
  - Platelet count decreased [Unknown]
  - Product dose omission in error [Unknown]

NARRATIVE: CASE EVENT DATE: 202105
